FAERS Safety Report 5038638-3 (Version None)
Quarter: 2006Q2

REPORT INFORMATION
  Report Type: 
  Country: None (occurrence: None)
  Receive Date: 20060623
  Receipt Date: 20060608
  Transmission Date: 20061013
  Serious: Yes (Death, Hospitalization, Disabling, Other)
  Sender: FDA-Public Use
  Company Number: 2005163994

PATIENT
  Age: 66 Year
  Sex: Female
  Weight: 54 kg

DRUGS (3)
  1. SUTENT [Suspect]
     Indication: RENAL CELL CARCINOMA STAGE UNSPECIFIED
     Dosage: 100 MG (50 MG,  2 IN 1 D), ORAL
     Route: 048
     Dates: end: 20060608
  2. IRENAT (SODIUM PERCHLORATE) [Concomitant]
  3. FAVISTAN (THIAMAZOLE) [Concomitant]

REACTIONS (6)
  - BACK INJURY [None]
  - DISEASE PROGRESSION [None]
  - FALL [None]
  - MONOPARESIS [None]
  - PERIPHERAL SENSORY NEUROPATHY [None]
  - POLYNEUROPATHY TOXIC [None]
